FAERS Safety Report 17863549 (Version 7)
Quarter: 2021Q2

REPORT INFORMATION
  Report Type: Report from Study
  Country: US (occurrence: US)
  Receive Date: 20200604
  Receipt Date: 20210429
  Transmission Date: 20210717
  Serious: Yes (Hospitalization, Other)
  Sender: FDA-Public Use
  Company Number: NVSC2020US154121

PATIENT
  Age: 70 Year
  Sex: Female

DRUGS (3)
  1. ENTRESTO [Suspect]
     Active Substance: SACUBITRIL\VALSARTAN
     Indication: CARDIAC FAILURE
     Dosage: 50 MG, BID(24/26MG)
     Route: 048
     Dates: start: 20190601
  2. WARFARIN [Concomitant]
     Active Substance: WARFARIN
     Indication: PRODUCT USED FOR UNKNOWN INDICATION
     Dosage: UNK UNK, UNKNOWN
     Route: 065
  3. CARVEDILOL. [Suspect]
     Active Substance: CARVEDILOL
     Indication: PRODUCT USED FOR UNKNOWN INDICATION
     Dosage: UNK UNK, UNKNOWN
     Route: 065

REACTIONS (15)
  - Muscular weakness [Unknown]
  - Fluid retention [Unknown]
  - Sinusitis [Recovering/Resolving]
  - Pharyngitis streptococcal [Recovering/Resolving]
  - Arterial rupture [Unknown]
  - Seasonal allergy [Unknown]
  - Fall [Unknown]
  - Cough [Recovering/Resolving]
  - Dyspnoea [Unknown]
  - Aneurysm [Unknown]
  - Fatigue [Unknown]
  - Memory impairment [Unknown]
  - Hypokinesia [Unknown]
  - Blood pressure decreased [Unknown]
  - Peripheral swelling [Unknown]

NARRATIVE: CASE EVENT DATE: 20200714
